FAERS Safety Report 8818017 (Version 1)
Quarter: 2012Q4

REPORT INFORMATION
  Report Type: 
  Country: GB (occurrence: GB)
  Receive Date: 20121001
  Receipt Date: 20121001
  Transmission Date: 20130627
  Serious: Yes (Other)
  Sender: FDA-Public Use
  Company Number: GB-RANBAXY-2012R1-60325

PATIENT
  Age: 36 Year
  Sex: Male
  Weight: 115 kg

DRUGS (3)
  1. AMISULPRIDE [Suspect]
     Indication: MENTAL DISORDER
     Dosage: 800 mg, qd
     Route: 048
  2. FLUOXETINE [Suspect]
     Indication: PRODUCT USED FOR UNKNOWN INDICATION
     Dosage: 40 mg, qd
     Route: 048
  3. OLANZAPINE [Suspect]
     Indication: MENTAL DISORDER
     Dosage: 20 mg, qd
     Route: 048

REACTIONS (2)
  - Atrioventricular block first degree [Unknown]
  - Blood prolactin increased [Unknown]
